FAERS Safety Report 7268152-6 (Version None)
Quarter: 2011Q1

REPORT INFORMATION
  Report Type: 
  Country: None (occurrence: None)
  Receive Date: 20110201
  Receipt Date: 20110120
  Transmission Date: 20110831
  Serious: Yes (Other)
  Sender: FDA-Public Use
  Company Number: GB-ELI_LILLY_AND_COMPANY-GB201101005183

PATIENT
  Sex: Female

DRUGS (2)
  1. FORTEO [Suspect]
  2. ZOLEDRONATE [Concomitant]
     Route: 042

REACTIONS (2)
  - WEIGHT DECREASED [None]
  - OSTEONECROSIS OF JAW [None]
